FAERS Safety Report 23255741 (Version 3)
Quarter: 2024Q1

REPORT INFORMATION
  Report Type: Report from Study
  Country: US (occurrence: US)
  Receive Date: 20231204
  Receipt Date: 20240109
  Transmission Date: 20240410
  Serious: Yes (Hospitalization)
  Sender: FDA-Public Use
  Company Number: US-TAKEDA-2023TUS074291

PATIENT
  Sex: Male

DRUGS (1)
  1. MARIBAVIR [Suspect]
     Active Substance: MARIBAVIR
     Indication: Cytomegalovirus infection
     Dosage: 2 DOSAGE FORM, BID
     Route: 048

REACTIONS (4)
  - Hospitalisation [Unknown]
  - Viral load increased [Unknown]
  - Cytomegalovirus test positive [Unknown]
  - Viral load abnormal [Unknown]
